FAERS Safety Report 17670412 (Version 1)
Quarter: 2020Q2

REPORT INFORMATION
  Report Type: Spontaneous
  Country: NL (occurrence: NL)
  Receive Date: 20200415
  Receipt Date: 20200415
  Transmission Date: 20200713
  Serious: Yes (Other)
  Sender: FDA-Public Use
  Company Number: NL-TEVA-2020-NL-1223069

PATIENT
  Sex: Male
  Weight: 80 kg

DRUGS (9)
  1. PREDNISOLONE. [Suspect]
     Active Substance: PREDNISOLONE
     Indication: PRODUCT USED FOR UNKNOWN INDICATION
     Dosage: 1 X 1 TABLET DAILY
     Dates: start: 20191002
  2. ACENOCOUMAROL [Concomitant]
     Active Substance: ACENOCOUMAROL
     Dosage: TABLET, 1 MG (MILLIGRAM)
  3. CALCI CHEW (CALCIUMCARBONAAT/COLECALCIFEROL) [Concomitant]
     Dosage: CHEWABLE TABLET, 1.25 G (GRAM) / 400 UNITS
  4. VESICARE (SOLIFENACINE) [Concomitant]
     Dosage: TABLET, 5 MG (MILLIGRAM)
  5. ALENDRONINEZUUR TABLET, 70 MG (MILLIGRAM) [Suspect]
     Active Substance: ALENDRONIC ACID
     Indication: PROPHYLAXIS
     Dosage: 1 X PER WEEK 1 TABLET
     Dates: start: 20191002, end: 20200310
  6. MAAGZUURREMMER OMEPRAZOL HTP (OMEPRAZOL) [Concomitant]
     Dosage: MAAGSAPRESISTENTE CAPSULE, 20 MG (MILLIGRAM)
  7. LOSARTAN. [Concomitant]
     Active Substance: LOSARTAN
     Dosage: FILM-COATED TABLET, 50 MG (MILLIGRAMS)
  8. ALLOPURINOL. [Concomitant]
     Active Substance: ALLOPURINOL
     Dosage: TABLET, 300 MG (MILLIGRAM)
  9. SIMVASTATINE [Concomitant]
     Active Substance: SIMVASTATIN
     Dosage: FILM-COATED TABLET, 40 MG (MILLIGRAMS)

REACTIONS (2)
  - Dental caries [Not Recovered/Not Resolved]
  - Gingival recession [Not Recovered/Not Resolved]
